FAERS Safety Report 9338248 (Version 1)
Quarter: 2013Q2

REPORT INFORMATION
  Report Type: Spontaneous
  Country: US (occurrence: None)
  Receive Date: 20130605
  Receipt Date: 20130605
  Transmission Date: 20140414
  Serious: Yes (Other)
  Sender: FDA-Public Use
  Company Number: None

PATIENT
  Age: 73 Year
  Sex: Female
  Weight: 83.46 kg

DRUGS (16)
  1. CARBIDOPA/LEVODOPA [Suspect]
     Indication: DYSKINESIA
     Dosage: 3 PILLS  3X/DAY  3X A DAY  ORAL.?STARTED TAKING: 4-19     STOPPED TAKING: 4-22
     Route: 048
  2. MILK THISTLE [Concomitant]
  3. CALCIUM CITRATE-VITAMIN D (CITRACAL PLUS D) [Concomitant]
  4. THERAPEUTIC MULTIVITAMIN-MINERALS (THERAGRAN-M) TABLET [Concomitant]
  5. OMEGA-3 FATTY ACIDS (FISH OIL) [Concomitant]
  6. S-ADENOSYLMETHIONINE (SAM-E COMPLETE) [Concomitant]
  7. TURMERIC CURCUMIN [Concomitant]
  8. VITAMIN D [Concomitant]
  9. VITAMIN C [Concomitant]
  10. GLUCOSAMINE CHONDR COMPLEX [Concomitant]
  11. ALPHA LIPOIC ACID [Concomitant]
  12. ACIDOPHILUS PROBIOTIC BLEND [Concomitant]
  13. CINNAMON [Concomitant]
  14. OIL OF OREGANO [Concomitant]
  15. HB NASAL HERBS [Concomitant]
  16. MELATONIN [Concomitant]

REACTIONS (6)
  - Dyskinesia [None]
  - Dyspnoea [None]
  - Nightmare [None]
  - Suicidal ideation [None]
  - Depression [None]
  - Palpitations [None]
